FAERS Safety Report 7679020-X (Version None)
Quarter: 2011Q3

REPORT INFORMATION
  Report Type: 
  Country: None (occurrence: None)
  Receive Date: 20110812
  Receipt Date: 20090504
  Transmission Date: 20111222
  Serious: No
  Sender: FDA-Public Use
  Company Number: 2009BI009655

PATIENT
  Age: 51 Year
  Sex: Male

DRUGS (2)
  1. TYSABRI [Suspect]
     Route: 042
     Dates: start: 20081201
  2. TYSABRI [Suspect]
     Indication: MULTIPLE SCLEROSIS
     Route: 042
     Dates: start: 20080919, end: 20081101

REACTIONS (5)
  - MEMORY IMPAIRMENT [None]
  - DEPRESSION [None]
  - ANXIETY [None]
  - BALANCE DISORDER [None]
  - VISUAL IMPAIRMENT [None]
